FAERS Safety Report 11273018 (Version 2)
Quarter: 2022Q3

REPORT INFORMATION
  Report Type: Spontaneous
  Country: MX (occurrence: MX)
  Receive Date: 20150715
  Receipt Date: 20220816
  Transmission Date: 20221027
  Serious: Yes (Other)
  Sender: FDA-Public Use
  Company Number: MX-PFIZER INC-2015232587

PATIENT
  Age: 8 Year
  Sex: Male
  Weight: 33 kg

DRUGS (5)
  1. GENOTROPIN [Suspect]
     Active Substance: SOMATROPIN
     Indication: Adrenogenital syndrome
     Dosage: 8 CLICKS/DAY AND 7 CLICKS/DAY, ALTERNATE DAYS
     Route: 058
     Dates: start: 2013
  2. GENOTROPIN [Suspect]
     Active Substance: SOMATROPIN
     Indication: Blood growth hormone abnormal
  3. FLORINEF ACETATE [Concomitant]
     Active Substance: FLUDROCORTISONE ACETATE
     Indication: Adrenogenital syndrome
     Dosage: 10 MG, DAILY
     Route: 048
     Dates: start: 20070412
  4. HYDROCORTISONE [Concomitant]
     Active Substance: HYDROCORTISONE
     Indication: Adrenogenital syndrome
     Dosage: 15 MG, DAILY, (10MG MORNING, 5MG NIGHT)
     Route: 048
     Dates: start: 20070412
  5. TAFENIL [Concomitant]
     Indication: Bone disorder
     Dosage: 250 MG, UNK
     Route: 048

REACTIONS (2)
  - Upper limb fracture [Not Recovered/Not Resolved]
  - Off label use [Unknown]

NARRATIVE: CASE EVENT DATE: 20150601
